FAERS Safety Report 8784609 (Version 2)
Quarter: 2013Q1

REPORT INFORMATION
  Report Type: Spontaneous
  Country: US (occurrence: None)
  Receive Date: 20120831
  Receipt Date: 20130128
  Transmission Date: 20140127
  Serious: Yes (Death, Other)
  Sender: FDA-Public Use
  Company Number: USA/USA/12/0025575

PATIENT
  Age: 74 Year
  Sex: Female

DRUGS (5)
  1. GEMCITABINE [Suspect]
     Indication: SARCOMA
     Dosage: 1 GRAM LYOPHILIZED POWDER IN A STERILE SINGLE-USE VIAL
  2. GEMCITABINE [Suspect]
     Indication: PHAEOCHROMOCYTOMA
     Dosage: 1 GRAM LYOPHILIZED POWDER IN A STERILE SINGLE-USE VIAL
  3. TAXOTERE [Suspect]
     Indication: PRODUCT USED FOR UNKNOWN INDICATION
  4. ADRIAMYCIN [Suspect]
     Indication: PRODUCT USED FOR UNKNOWN INDICATION
  5. VOTRIENT [Suspect]
     Indication: PRODUCT USED FOR UNKNOWN INDICATION

REACTIONS (3)
  - Drug ineffective [None]
  - Product quality issue [None]
  - Malignant neoplasm progression [None]
